FAERS Safety Report 6653355-1 (Version None)
Quarter: 2010Q1

REPORT INFORMATION
  Report Type: 
  Country: None (occurrence: None)
  Receive Date: 20100326
  Receipt Date: 20100319
  Transmission Date: 20100710
  Serious: Yes (Death)
  Sender: FDA-Public Use
  Company Number: JP-ROCHE-688587

PATIENT
  Sex: Male
  Weight: 51 kg

DRUGS (14)
  1. AVASTIN [Suspect]
     Indication: LUNG ADENOCARCINOMA
     Route: 041
     Dates: start: 20100104, end: 20100215
  2. TAXOTERE [Suspect]
     Indication: LUNG ADENOCARCINOMA
     Dosage: DRUG: TAXOTERE(DOCETAXEL HYDRATE)
     Route: 041
     Dates: start: 20091116, end: 20100103
  3. TAXOTERE [Suspect]
     Route: 041
     Dates: start: 20100104, end: 20100201
  4. VESICARE [Concomitant]
     Dosage: DRUG REPORTED AS VESICARE(SOLIFENACIN SUCCINATE)
     Route: 048
     Dates: start: 20091215, end: 20100222
  5. ALLELOCK [Concomitant]
     Route: 048
     Dates: start: 20091016, end: 20100222
  6. LENDORMIN [Concomitant]
     Dosage: DRUG: LENDORMIN D
     Route: 048
     Dates: start: 20090410, end: 20100222
  7. NORVASC [Concomitant]
     Route: 048
     Dates: start: 20090724, end: 20100222
  8. ACINON [Concomitant]
     Route: 048
     Dates: start: 20091221, end: 20100222
  9. MUCOSOLVAN [Concomitant]
     Dosage: DRUG: MUCOSOLVAN L(AMBROXOL HYDROCHLORIDE)
     Route: 048
     Dates: start: 20080411, end: 20100222
  10. EVAMYL [Concomitant]
     Route: 048
     Dates: start: 20081024, end: 20100222
  11. MUCODYNE [Concomitant]
     Route: 048
     Dates: start: 20081114, end: 20100222
  12. DILTIAZEM HYDROCHLORIDE [Concomitant]
     Dosage: DOSE FORM: SUSTAINED RELEASE CAPSULE, DRUG: HERBESSER R (DILTIAZEM HYDROCHLORIDE)
     Route: 048
     Dates: start: 20091225, end: 20100222
  13. DECADRON [Concomitant]
     Dosage: DRUG: DECADRON (DEXAMETHASONE SODIUM PHOSPHATE)
     Route: 041
     Dates: start: 20100104, end: 20100201
  14. KYTRIL [Concomitant]
     Dosage: DRUG: KYTRIL INJECTION
     Route: 041
     Dates: start: 20100104, end: 20100201

REACTIONS (3)
  - EPISTAXIS [None]
  - IDIOPATHIC PULMONARY FIBROSIS [None]
  - RESPIRATORY TRACT INFECTION [None]
